FAERS Safety Report 12268917 (Version 1)
Quarter: 2016Q2

REPORT INFORMATION
  Report Type: Spontaneous
  Country: GB (occurrence: GB)
  Receive Date: 20160414
  Receipt Date: 20160414
  Transmission Date: 20160815
  Serious: Yes (Other)
  Sender: FDA-Public Use
  Company Number: GB-PFIZER INC-2016202196

PATIENT
  Age: 44 Year
  Sex: Female
  Weight: 70 kg

DRUGS (1)
  1. SERTRALINE HCL [Suspect]
     Active Substance: SERTRALINE HYDROCHLORIDE
     Indication: ANXIETY
     Dosage: 100 MG, 1X/DAY
     Route: 048
     Dates: start: 20151020

REACTIONS (1)
  - Bruxism [Not Recovered/Not Resolved]

NARRATIVE: CASE EVENT DATE: 20151120
